FAERS Safety Report 4636095-X (Version None)
Quarter: 2005Q2

REPORT INFORMATION
  Report Type: 
  Country: None (occurrence: None)
  Receive Date: 20050325
  Receipt Date: 20041230
  Transmission Date: 20051028
  Serious: No
  Sender: FDA-Public Use
  Company Number: USA040772068

PATIENT
  Age: 72 Year
  Sex: Female
  Weight: 48 kg

DRUGS (4)
  1. FORTEO [Suspect]
     Indication: OSTEOPOROSIS
     Dosage: 20 UG DAY
     Dates: start: 20040625
  2. EVISTA [Suspect]
     Indication: OSTEOPOROSIS
     Dates: start: 20030707, end: 20040721
  3. CALCIUM GLUCONATE [Concomitant]
  4. MULTI-VITAMIN [Concomitant]

REACTIONS (4)
  - FATIGUE [None]
  - INJECTION SITE HAEMORRHAGE [None]
  - NIGHT CRAMPS [None]
  - SLEEP DISORDER [None]
